FAERS Safety Report 11410425 (Version 1)
Quarter: 2015Q3

REPORT INFORMATION
  Report Type: Spontaneous
  Country: US (occurrence: US)
  Receive Date: 20150824
  Receipt Date: 20150824
  Transmission Date: 20151125
  Serious: Yes (Death)
  Sender: FDA-Public Use
  Company Number: US-ASTELLAS-2015US029997

PATIENT
  Age: 73 Year
  Sex: Male

DRUGS (1)
  1. XTANDI [Suspect]
     Active Substance: ENZALUTAMIDE
     Indication: PROSTATE CANCER
     Dosage: 160 MG (4 DF (CAPSULES)), ONCE DAILY
     Route: 048
     Dates: start: 20150613, end: 20150718

REACTIONS (1)
  - Death [Fatal]

NARRATIVE: CASE EVENT DATE: 20150718
